FAERS Safety Report 7005484-0 (Version None)
Quarter: 2010Q3

REPORT INFORMATION
  Report Type: 
  Country: None (occurrence: None)
  Receive Date: 20100917
  Receipt Date: 20100826
  Transmission Date: 20110219
  Serious: Yes (Hospitalization, Disabling)
  Sender: FDA-Public Use
  Company Number: 7015517

PATIENT
  Age: 76 Year
  Sex: Male

DRUGS (9)
  1. METFORMIN (METFORMIN) (METFORMIN) [Suspect]
     Indication: DIABETES MELLITUS
     Dosage: 1000 MG (500 MG,2 IN 1 D)  ORAL,  LONG TIME AGO
     Route: 048
  2. BISOPROLOL FUMARATE [Suspect]
     Indication: HYPERTENSION
     Dosage: 1 DF (1 DF, 1 IN 1 D)  ORAL, LONG TIME AGO
     Route: 048
  3. LEVOTHYROXINE SODIUM [Suspect]
     Indication: HYPOTHYROIDISM
     Dosage: 1 DF (1 DF,1 IN 1 D)  ORAL, LONG TIME AGO
     Route: 048
  4. ATORVASTATIN CALCIUM [Suspect]
     Dosage: 1 DF (1 DF,1 IN 1 D)  ORAL, LONG TIME AGO
     Route: 048
     Dates: end: 20100301
  5. XELEVIA (SITAGLIPTIN) (100 MG, COATED TABLET) (SITAGLIPTIN PHOSPHATE) [Suspect]
     Indication: DIABETES MELLITUS
     Dosage: 1 DF (1 DF,1 IN 1 D)  ORAL
     Route: 048
     Dates: start: 20091201, end: 20100301
  6. RABEPRAZOLE SODIUM [Suspect]
     Indication: GASTROOESOPHAGEAL REFLUX DISEASE
     Dosage: 1 DF (1 DF, 1 IN 1 D) ORAL,  LONG TIME TREATMENT
     Route: 048
     Dates: end: 20100201
  7. PAROXETINE HYDROCHLORIDE [Suspect]
     Indication: DEPRESSION
     Dosage: 1 DF (1 DF,1 IN 1 D)  ORAL , LONG TIME AGO
     Route: 048
     Dates: end: 20100101
  8. VALSARTAN [Suspect]
     Indication: HYPERTENSION
     Dosage: 1 DF (1 DF, 1 IN 1 D)  ORAL, LONG TIME AGO
     Route: 048
  9. KARDEGIC (ACETYLSALICYLATE LYSINE) (ACPTYLSALICYLATE LYSINE) [Suspect]
     Indication: MYOCARDIAL ISCHAEMIA
     Dosage: 1 DF (1 DF, 1 IN 1 D)  ORAL,   LONG TIME AGO
     Route: 048

REACTIONS (11)
  - CARPAL TUNNEL SYNDROME [None]
  - CONDITION AGGRAVATED [None]
  - DIABETIC NEUROPATHY [None]
  - GASTROOESOPHAGEAL REFLUX DISEASE [None]
  - HYPERHIDROSIS [None]
  - HYPOAESTHESIA [None]
  - OSTEOARTHRITIS [None]
  - RHABDOMYOLYSIS [None]
  - TREATMENT NONCOMPLIANCE [None]
  - VULVOVAGINAL BURNING SENSATION [None]
  - WEIGHT DECREASED [None]
